FAERS Safety Report 12787108 (Version 2)
Quarter: 2016Q4

REPORT INFORMATION
  Report Type: Spontaneous
  Country: US (occurrence: US)
  Receive Date: 20160927
  Receipt Date: 20161007
  Transmission Date: 20170207
  Serious: No
  Sender: FDA-Public Use
  Company Number: US-BIOMARINAP-US-2016-111215

PATIENT
  Age: 2 Year
  Sex: Male

DRUGS (1)
  1. KUVAN [Suspect]
     Active Substance: SAPROPTERIN DIHYDROCHLORIDE
     Indication: PHENYLKETONURIA
     Dosage: 20 MG/KG, QD
     Route: 048
     Dates: start: 20160109

REACTIONS (2)
  - Epistaxis [Recovered/Resolved]
  - Hand-foot-and-mouth disease [Recovered/Resolved]

NARRATIVE: CASE EVENT DATE: 20160918
